FAERS Safety Report 21297513 (Version 1)
Quarter: 2022Q3

REPORT INFORMATION
  Report Type: Spontaneous
  Country: US (occurrence: US)
  Receive Date: 20220906
  Receipt Date: 20220906
  Transmission Date: 20221027
  Serious: No
  Sender: FDA-Public Use
  Company Number: US-drreddys-SPO/USA/22/0153980

PATIENT
  Age: 15 Year

DRUGS (1)
  1. ZENATANE [Suspect]
     Active Substance: ISOTRETINOIN
     Indication: Acne
     Dosage: RMA ISSUE DATE: 18 JULY 2022, 04:21:34 PM; 24 JUNE 2022, 06:43:50 PM; 26 MAY 2022, 07:59:37 PM; 20 A

REACTIONS (1)
  - Hepatic enzyme increased [Unknown]
